FAERS Safety Report 7542639-0 (Version None)
Quarter: 2011Q2

REPORT INFORMATION
  Report Type: 
  Country: None (occurrence: None)
  Receive Date: 20110613
  Receipt Date: 20110601
  Transmission Date: 20111010
  Serious: Yes (Other)
  Sender: FDA-Public Use
  Company Number: FR-B.I. PHARMACEUTICALS,INC./RIDGEFIELD-2011-FF-00268FF

PATIENT
  Sex: Female
  Weight: 55 kg

DRUGS (4)
  1. PRADAXA [Suspect]
     Indication: HIP ARTHROPLASTY
     Dosage: 220 MG
     Route: 048
     Dates: start: 20110309, end: 20110313
  2. OROCAL [Concomitant]
  3. LANZOR [Concomitant]
  4. VASTAREL [Concomitant]

REACTIONS (10)
  - DECREASED APPETITE [None]
  - ANXIETY [None]
  - CONSTIPATION [None]
  - ASPARTATE AMINOTRANSFERASE INCREASED [None]
  - DIARRHOEA [None]
  - ALANINE AMINOTRANSFERASE INCREASED [None]
  - NAUSEA [None]
  - GENERAL PHYSICAL HEALTH DETERIORATION [None]
  - GAMMA-GLUTAMYLTRANSFERASE INCREASED [None]
  - DRY MOUTH [None]
